FAERS Safety Report 11179477 (Version 2)
Quarter: 2015Q4

REPORT INFORMATION
  Report Type: Spontaneous
  Country: US (occurrence: US)
  Receive Date: 20150611
  Receipt Date: 20151029
  Transmission Date: 20160304
  Serious: Yes (Hospitalization, Other)
  Sender: FDA-Public Use
  Company Number: US-AMGEN-USASP2015055962

PATIENT
  Age: 81 Year
  Sex: Female
  Weight: 62.99 kg

DRUGS (3)
  1. XGEVA [Suspect]
     Active Substance: DENOSUMAB
     Indication: PRODUCT USED FOR UNKNOWN INDICATION
     Dosage: UNK
     Route: 065
  2. LETROZOLE. [Concomitant]
     Active Substance: LETROZOLE
     Dosage: UNK
     Dates: start: 20150226, end: 20150401
  3. PALBOCICLIB [Suspect]
     Active Substance: PALBOCICLIB
     Indication: BREAST CANCER
     Dosage: 21 DAYS OUT OF 28 DAY CYCLE
     Route: 048
     Dates: start: 20150226, end: 20150401

REACTIONS (8)
  - Breast cancer [Unknown]
  - Dyspnoea [Unknown]
  - Abscess jaw [Unknown]
  - Abscess neck [Unknown]
  - Hypervolaemia [Unknown]
  - Peptostreptococcus infection [Unknown]
  - Hyponatraemia [Recovering/Resolving]
  - Osteomyelitis [Recovered/Resolved with Sequelae]

NARRATIVE: CASE EVENT DATE: 20150212
